FAERS Safety Report 21024379 (Version 21)
Quarter: 2023Q1

REPORT INFORMATION
  Report Type: Spontaneous
  Country: JP (occurrence: JP)
  Receive Date: 20220629
  Receipt Date: 20230215
  Transmission Date: 20230418
  Serious: Yes (Hospitalization, Other)
  Sender: FDA-Public Use
  Company Number: JP-MSD-M2022-23125

PATIENT
  Age: 74 Year
  Sex: Female

DRUGS (3)
  1. KEYTRUDA [Suspect]
     Active Substance: PEMBROLIZUMAB
     Indication: Renal cell carcinoma stage IV
     Dosage: 200 MILLIGRAM, Q3W
     Route: 041
     Dates: start: 20220602, end: 20220825
  2. LENVATINIB MESYLATE [Suspect]
     Active Substance: LENVATINIB MESYLATE
     Indication: Renal cell carcinoma stage IV
     Dosage: 20 MILLIGRAM, QD
     Route: 048
     Dates: start: 20220602, end: 20220623
  3. LENVATINIB MESYLATE [Suspect]
     Active Substance: LENVATINIB MESYLATE
     Dosage: 14 MILLIGRAM, QD
     Route: 048
     Dates: start: 20220701, end: 20220804

REACTIONS (25)
  - Internal haemorrhage [Unknown]
  - Proteinuria [Recovering/Resolving]
  - Hypothyroidism [Recovered/Resolved]
  - Hyperthyroidism [Unknown]
  - Fulminant type 1 diabetes mellitus [Recovered/Resolved]
  - Immune-mediated pancreatitis [Unknown]
  - Malaise [Unknown]
  - Rash erythematous [Recovering/Resolving]
  - Hypophagia [Unknown]
  - Discouragement [Unknown]
  - Hypertension [Recovered/Resolved]
  - Oral pain [Recovering/Resolving]
  - Dry mouth [Recovering/Resolving]
  - Headache [Recovered/Resolved]
  - Insomnia [Recovering/Resolving]
  - Weight increased [Unknown]
  - Oedema peripheral [Recovering/Resolving]
  - Platelet count decreased [Recovered/Resolved]
  - Nausea [Recovered/Resolved]
  - Dysphonia [Recovered/Resolved]
  - Weight decreased [Recovered/Resolved]
  - Platelet count decreased [Recovered/Resolved]
  - Weight decreased [Recovering/Resolving]
  - Diarrhoea [Recovered/Resolved]
  - Blood albumin decreased [Unknown]

NARRATIVE: CASE EVENT DATE: 20220601
